FAERS Safety Report 17543943 (Version 1)
Quarter: 2020Q1

REPORT INFORMATION
  Report Type: Spontaneous
  Country: SE (occurrence: SE)
  Receive Date: 20200316
  Receipt Date: 20200316
  Transmission Date: 20200409
  Serious: Yes (Life-Threatening)
  Sender: FDA-Public Use
  Company Number: SE-TEVA-2020-SE-1199386

PATIENT
  Age: 53 Year
  Sex: Male

DRUGS (6)
  1. GIONA EASYHALER [Concomitant]
     Active Substance: BUDESONIDE
     Dosage: ^2X2^
     Dates: start: 201905
  2. ENALAPRIL [Suspect]
     Active Substance: ENALAPRIL
     Dosage: 10 MG
     Dates: start: 20170523, end: 20171025
  3. ENALAPRIL [Suspect]
     Active Substance: ENALAPRIL
     Dosage: 5 MG
     Route: 065
     Dates: start: 20160902, end: 20170522
  4. AMLODIPINE [Suspect]
     Active Substance: AMLODIPINE BESYLATE
     Indication: HYPERTENSION
     Dosage: ^5 MG^
     Dates: start: 20180226
  5. ENALAPRIL [Suspect]
     Active Substance: ENALAPRIL
     Dosage: 20 MILLIGRAM DAILY; ^20 MG DAILY^
     Dates: start: 20171026
  6. BUVENTOL EASYHALER [Concomitant]
     Active Substance: ALBUTEROL SULFATE
     Dosage: VB
     Dates: start: 201905

REACTIONS (1)
  - Tinnitus [Recovering/Resolving]

NARRATIVE: CASE EVENT DATE: 20190802
